FAERS Safety Report 24372085 (Version 1)
Quarter: 2024Q3

REPORT INFORMATION
  Report Type: Spontaneous
  Country: IT (occurrence: IT)
  Receive Date: 20240927
  Receipt Date: 20240927
  Transmission Date: 20241016
  Serious: Yes (Hospitalization)
  Sender: MYLAN
  Company Number: IT-MYLANLABS-2024M1086668

PATIENT
  Age: 62 Year
  Sex: Female

DRUGS (2)
  1. LYRICA [Suspect]
     Active Substance: PREGABALIN
     Indication: Fibromyalgia
     Dosage: 25 MILLIGRAM
     Route: 065
  2. LYRICA [Suspect]
     Active Substance: PREGABALIN
     Dosage: 75 MILLIGRAM
     Route: 065

REACTIONS (1)
  - Cerebrovascular accident [Recovering/Resolving]
